FAERS Safety Report 7258128-7 (Version None)
Quarter: 2011Q1

REPORT INFORMATION
  Report Type: 
  Country: None (occurrence: None)
  Receive Date: 20110129
  Receipt Date: 20100712
  Transmission Date: 20110831
  Serious: No
  Sender: FDA-Public Use
  Company Number: US-ABBOTT-10P-163-0657379-00

PATIENT
  Sex: Male
  Weight: 102.15 kg

DRUGS (3)
  1. UNKNOWN HEART MEDICATION [Concomitant]
     Indication: PRODUCT USED FOR UNKNOWN INDICATION
     Dosage: UNKNOWN
  2. HUMIRA [Suspect]
     Indication: CROHN'S DISEASE
     Dates: start: 20100616, end: 20100616
  3. HUMIRA [Suspect]
     Dates: start: 20100630, end: 20100630

REACTIONS (2)
  - ABDOMINAL PAIN [None]
  - DECREASED APPETITE [None]
